FAERS Safety Report 6732812-3 (Version None)
Quarter: 2010Q2

REPORT INFORMATION
  Report Type: 
  Country: None (occurrence: None)
  Receive Date: 20100519
  Receipt Date: 20100507
  Transmission Date: 20101027
  Serious: Yes (Other)
  Sender: FDA-Public Use
  Company Number: US-AMGEN-QUU411290

PATIENT
  Sex: Female

DRUGS (1)
  1. ENBREL [Suspect]
     Indication: PSORIATIC ARTHROPATHY
     Route: 058
     Dates: start: 20091103

REACTIONS (8)
  - ARTHRALGIA [None]
  - CYSTITIS INTERSTITIAL [None]
  - GRIP STRENGTH DECREASED [None]
  - JOINT SWELLING [None]
  - MONOPARESIS [None]
  - PAIN [None]
  - SINUS HEADACHE [None]
  - THYROID NEOPLASM [None]
